FAERS Safety Report 14444579 (Version 1)
Quarter: 2018Q1

REPORT INFORMATION
  Report Type: Spontaneous
  Country: NL (occurrence: NL)
  Receive Date: 20180126
  Receipt Date: 20180126
  Transmission Date: 20180509
  Serious: Yes (Other)
  Sender: FDA-Public Use
  Company Number: NL-TEVA-2018-NL-851897

PATIENT
  Age: 56 Year
  Sex: Female
  Weight: 75 kg

DRUGS (9)
  1. BISOPROLOL [Suspect]
     Active Substance: BISOPROLOL
     Indication: AORTIC ARTERIOSCLEROSIS
  2. ACETYLSALICYLZUUR [Concomitant]
     Active Substance: ASPIRIN
  3. Q10 [Concomitant]
  4. FOLIUMZUUR [Concomitant]
     Active Substance: FOLIC ACID
  5. ZOLPIDEM 5 MG [Concomitant]
     Active Substance: ZOLPIDEM\ZOLPIDEM TARTRATE
  6. BISOPROLOL [Suspect]
     Active Substance: BISOPROLOL
     Indication: HEART VALVE INCOMPETENCE
     Route: 065
     Dates: start: 20171016, end: 20171025
  7. NITROGLYCERINE SPRAY [Concomitant]
     Dosage: (NAAR BEHOEFTE)
  8. VITAMIN B12 [Concomitant]
     Active Substance: CYANOCOBALAMIN
  9. VITAMIN C [Concomitant]
     Active Substance: ASCORBIC ACID

REACTIONS (8)
  - Lethargy [Recovered/Resolved with Sequelae]
  - Hypoaesthesia [Recovered/Resolved]
  - Immobile [Not Recovered/Not Resolved]
  - Dizziness [Recovered/Resolved]
  - Dyspnoea [Not Recovered/Not Resolved]
  - Chest discomfort [Not Recovered/Not Resolved]
  - Palpitations [Recovered/Resolved]
  - Pain in extremity [Recovered/Resolved]

NARRATIVE: CASE EVENT DATE: 20171016
